FAERS Safety Report 7540645-3 (Version None)
Quarter: 2011Q2

REPORT INFORMATION
  Report Type: 
  Country: None (occurrence: None)
  Receive Date: 20110603
  Receipt Date: 20110523
  Transmission Date: 20111010
  Serious: Yes (Hospitalization, Other)
  Sender: FDA-Public Use
  Company Number: 2011P1006774

PATIENT
  Age: 49 Year
  Sex: Male

DRUGS (2)
  1. DOXYCYCLINE [Suspect]
     Indication: COUGH
  2. DOXYCYCLINE [Suspect]
     Indication: OROPHARYNGEAL PAIN

REACTIONS (8)
  - CORNEAL NEOVASCULARISATION [None]
  - POST PROCEDURAL COMPLICATION [None]
  - AMNIOTIC MEMBRANE GRAFT [None]
  - CORNEAL PERFORATION [None]
  - VISUAL ACUITY REDUCED [None]
  - STEVENS-JOHNSON SYNDROME [None]
  - ULCERATIVE KERATITIS [None]
  - PHOTOPHOBIA [None]
